FAERS Safety Report 15779038 (Version 2)
Quarter: 2019Q1

REPORT INFORMATION
  Report Type: Spontaneous
  Country: DE (occurrence: DE)
  Receive Date: 20190101
  Receipt Date: 20190211
  Transmission Date: 20190417
  Serious: Yes (Other)
  Sender: FDA-Public Use
  Company Number: PHHY2018DE197559

PATIENT
  Age: 58 Year
  Sex: Male
  Weight: 77 kg

DRUGS (5)
  1. METOPROLOL TARTRATE+HYDROCHLOROTHIAZIDE SANDOZ [Suspect]
     Active Substance: HYDROCHLOROTHIAZIDE\METOPROLOL TARTRATE
     Indication: PRODUCT USED FOR UNKNOWN INDICATION
     Dosage: 0.5 DF, QD (47.5/6.25)
     Route: 065
     Dates: start: 1993
  2. METOPROLOLSUCCINAT PLUS 95_12.5 - 1 A PHARMA [Suspect]
     Active Substance: METOPROLOL SUCCINATE
     Indication: MUSCLE RELAXANT THERAPY
     Dosage: 0.5 DF, QD (95/12.5, OD HALF TAB)
     Route: 065
  3. LOSARTAN. [Concomitant]
     Active Substance: LOSARTAN
     Indication: PRODUCT USED FOR UNKNOWN INDICATION
     Dosage: 50 MG, QD
     Route: 048
     Dates: start: 2009
  4. BELOC ZOK [Suspect]
     Active Substance: METOPROLOL SUCCINATE
     Dosage: 0.5 DF, QD
     Route: 065
     Dates: start: 2009
  5. BELOC ZOK [Suspect]
     Active Substance: METOPROLOL SUCCINATE
     Indication: MUSCLE RELAXANT THERAPY
     Dosage: 1 DF, QD
     Route: 065
     Dates: start: 1993

REACTIONS (6)
  - Mental disorder [Unknown]
  - Glaucoma [Unknown]
  - Wrong technique in product usage process [Unknown]
  - Lacrimation increased [Not Recovered/Not Resolved]
  - Dizziness [Unknown]
  - Fatigue [Unknown]

NARRATIVE: CASE EVENT DATE: 2009
